FAERS Safety Report 6967045-9 (Version None)
Quarter: 2010Q3

REPORT INFORMATION
  Report Type: 
  Country: None (occurrence: None)
  Receive Date: 20100907
  Receipt Date: 20100825
  Transmission Date: 20110219
  Serious: Yes (Hospitalization)
  Sender: FDA-Public Use
  Company Number: US-BAYER-201018765NA

PATIENT
  Age: 25 Year
  Sex: Female
  Weight: 50 kg

DRUGS (5)
  1. YAZ [Suspect]
     Indication: CONTRACEPTION
     Route: 048
     Dates: start: 20070101, end: 20080101
  2. IMITREX [Concomitant]
  3. MIGRANAL [Concomitant]
  4. ADVIL LIQUI-GELS [Concomitant]
  5. EFFEXOR [Concomitant]

REACTIONS (1)
  - GALLBLADDER INJURY [None]
